FAERS Safety Report 10055773 (Version 2)
Quarter: 2014Q2

REPORT INFORMATION
  Report Type: Spontaneous
  Country: US (occurrence: US)
  Receive Date: 20140403
  Receipt Date: 20140403
  Transmission Date: 20141212
  Serious: Yes (Disabling, Other)
  Sender: FDA-Public Use
  Company Number: US-AMGEN-USASP2014015775

PATIENT
  Age: 67 Year
  Sex: Female

DRUGS (5)
  1. PROLIA [Suspect]
     Indication: OSTEOPOROSIS POSTMENOPAUSAL
     Dosage: UNK
     Route: 065
     Dates: start: 2012
  2. VIIBRYD [Concomitant]
     Dosage: 20 MG, UNK
  3. LEXAPRO                            /01588501/ [Concomitant]
  4. TRAZODONE [Concomitant]
  5. KLONOPIN [Concomitant]

REACTIONS (14)
  - Post-traumatic stress disorder [Unknown]
  - Immune system disorder [Unknown]
  - Candida infection [Recovering/Resolving]
  - Influenza like illness [Not Recovered/Not Resolved]
  - Sinusitis [Not Recovered/Not Resolved]
  - Fungal infection [Unknown]
  - Tinea manuum [Unknown]
  - Tinea faciei [Unknown]
  - Psoriasis [Unknown]
  - Malaise [Unknown]
  - Feeling abnormal [Recovering/Resolving]
  - Fall [Unknown]
  - Arthralgia [Recovering/Resolving]
  - Eczema [Unknown]
